FAERS Safety Report 13390332 (Version 1)
Quarter: 2017Q1

REPORT INFORMATION
  Report Type: Spontaneous
  Country: US (occurrence: US)
  Receive Date: 20170330
  Receipt Date: 20170330
  Transmission Date: 20170429
  Serious: Yes (Hospitalization)
  Sender: FDA-Public Use
  Company Number: None

PATIENT
  Age: 67 Year
  Sex: Male
  Weight: 92.7 kg

DRUGS (1)
  1. SIMVASTATIN. [Suspect]
     Active Substance: SIMVASTATIN
     Indication: HYPERLIPIDAEMIA
     Route: 048
     Dates: start: 20090123, end: 20151125

REACTIONS (6)
  - Cellulitis [None]
  - Pyrexia [None]
  - Blood creatine phosphokinase increased [None]
  - Malaise [None]
  - Hyperosmolar hyperglycaemic state [None]
  - Chills [None]

NARRATIVE: CASE EVENT DATE: 20151125
